FAERS Safety Report 24833217 (Version 1)
Quarter: 2025Q1

REPORT INFORMATION
  Report Type: Spontaneous
  Country: CA (occurrence: CA)
  Receive Date: 20250111
  Receipt Date: 20250111
  Transmission Date: 20250408
  Serious: Yes (Other)
  Sender: ACCORD
  Company Number: None

PATIENT
  Age: 36 Year
  Sex: Female

DRUGS (14)
  1. METHOTREXATE [Suspect]
     Active Substance: METHOTREXATE
     Indication: Uveitis
     Route: 048
  2. TOCILIZUMAB [Concomitant]
     Active Substance: TOCILIZUMAB
     Route: 042
  3. VITAMIN D [Concomitant]
     Active Substance: VITAMIN D NOS
  4. ACTEMRA [Concomitant]
     Active Substance: TOCILIZUMAB
     Route: 042
  5. ADALIMUMAB [Concomitant]
     Active Substance: ADALIMUMAB
  6. AZATHIOPRINE [Concomitant]
     Active Substance: AZATHIOPRINE
  7. CALCIUM [Concomitant]
     Active Substance: CALCIUM
  8. FOLIC ACID [Concomitant]
     Active Substance: FOLIC ACID
  9. MYCOPHENOLATE MOFETIL [Concomitant]
     Active Substance: MYCOPHENOLATE MOFETIL
  10. OMEGA 3 [Concomitant]
     Active Substance: CAPSAICIN
  11. PREDNISONE [Concomitant]
     Active Substance: PREDNISONE
  12. METHOTREXATE [Suspect]
     Active Substance: METHOTREXATE
     Indication: Uveitis
  13. METHOTREXATE [Suspect]
     Active Substance: METHOTREXATE
     Indication: Uveitis
  14. PREDNISONE [Concomitant]
     Active Substance: PREDNISONE

REACTIONS (7)
  - Condition aggravated [Not Recovered/Not Resolved]
  - Arthralgia [Not Recovered/Not Resolved]
  - Fibromyalgia [Not Recovered/Not Resolved]
  - Retinal vasculitis [Not Recovered/Not Resolved]
  - Uveitis [Not Recovered/Not Resolved]
  - Anxiety [Not Recovered/Not Resolved]
  - Cataract [Not Recovered/Not Resolved]
